FAERS Safety Report 7092807-X (Version None)
Quarter: 2010Q4

REPORT INFORMATION
  Report Type: 
  Country: None (occurrence: None)
  Receive Date: 20101110
  Receipt Date: 20101103
  Transmission Date: 20110411
  Serious: No
  Sender: FDA-Public Use
  Company Number: US-PFIZER INC-2010140157

PATIENT
  Sex: Female

DRUGS (1)
  1. MEDROL [Suspect]
     Indication: SINUSITIS

REACTIONS (1)
  - DRUG INEFFECTIVE [None]
